FAERS Safety Report 5401441-6 (Version None)
Quarter: 2007Q3

REPORT INFORMATION
  Report Type: 
  Country: None (occurrence: None)
  Receive Date: 20070731
  Receipt Date: 20070726
  Transmission Date: 20080115
  Serious: Yes (Life-Threatening)
  Sender: FDA-Public Use
  Company Number: FR-ASTRAZENECA-2007CG01120

PATIENT
  Age: 14590 Day
  Sex: Male

DRUGS (5)
  1. NEXIUM [Suspect]
     Indication: GASTROOESOPHAGEAL REFLUX DISEASE
     Route: 048
  2. REMICADE [Suspect]
     Indication: COLITIS ULCERATIVE
     Route: 042
     Dates: start: 20070101
  3. AZATHIOPRINE SODIUM [Concomitant]
     Indication: COLITIS ULCERATIVE
     Route: 048
  4. PREVISCAN [Concomitant]
     Route: 048
  5. SOLU-MEDROL [Concomitant]
     Route: 048

REACTIONS (1)
  - PULMONARY EMBOLISM [None]
